FAERS Safety Report 7031084-2 (Version None)
Quarter: 2010Q4

REPORT INFORMATION
  Report Type: 
  Country: None (occurrence: None)
  Receive Date: 20101001
  Receipt Date: 20100317
  Transmission Date: 20110411
  Serious: Yes (Death)
  Sender: FDA-Public Use
  Company Number: 707840

PATIENT
  Sex: Male

DRUGS (5)
  1. VINCRISTINE SULFATE [Suspect]
     Indication: PRODUCT USED FOR UNKNOWN INDICATION
  2. (RITUXIMAB) [Suspect]
     Indication: PRODUCT USED FOR UNKNOWN INDICATION
  3. MITOXANTRONE [Suspect]
     Indication: PRODUCT USED FOR UNKNOWN INDICATION
  4. ENDOXAN /00021101/) [Suspect]
     Indication: PRODUCT USED FOR UNKNOWN INDICATION
  5. NEULASTA [Suspect]
     Indication: PRODUCT USED FOR UNKNOWN INDICATION

REACTIONS (2)
  - DISEASE RECURRENCE [None]
  - PNEUMONITIS [None]
